FAERS Safety Report 14366320 (Version 1)
Quarter: 2018Q1

REPORT INFORMATION
  Report Type: Report from Study
  Country: None (occurrence: US)
  Receive Date: 20180109
  Receipt Date: 20180109
  Transmission Date: 20180509
  Serious: Yes (Hospitalization, Other)
  Sender: FDA-Public Use
  Company Number: US-ABBVIE-17K-163-2193751-00

PATIENT
  Age: 54 Year
  Sex: Male
  Weight: 90.8 kg

DRUGS (1)
  1. HUMIRA [Suspect]
     Active Substance: ADALIMUMAB
     Indication: CROHN^S DISEASE
     Route: 058
     Dates: start: 2008, end: 200808

REACTIONS (6)
  - Joint effusion [Recovered/Resolved]
  - Back pain [Recovered/Resolved]
  - Abnormal loss of weight [Not Recovered/Not Resolved]
  - Plasma cell myeloma [Recovering/Resolving]
  - Arthritis infective [Recovered/Resolved]
  - Crohn^s disease [Recovered/Resolved]

NARRATIVE: CASE EVENT DATE: 200808
